FAERS Safety Report 7266822-7 (Version None)
Quarter: 2011Q1

REPORT INFORMATION
  Report Type: 
  Country: None (occurrence: None)
  Receive Date: 20110201
  Receipt Date: 20110121
  Transmission Date: 20110831
  Serious: Yes (Death)
  Sender: FDA-Public Use
  Company Number: DE-JNJFOC-20110107368

PATIENT
  Sex: Male
  Weight: 76 kg

DRUGS (3)
  1. TORASEMID [Concomitant]
  2. PALEXIA RETARD [Suspect]
     Indication: PAIN
     Route: 048
  3. THIAMAZOL [Concomitant]

REACTIONS (1)
  - CARDIAC ARREST [None]
